FAERS Safety Report 16591535 (Version 1)
Quarter: 2019Q3

REPORT INFORMATION
  Report Type: Spontaneous
  Country: US (occurrence: US)
  Receive Date: 20190718
  Receipt Date: 20190718
  Transmission Date: 20191004
  Serious: Yes (Other)
  Sender: FDA-Public Use
  Company Number: US-PFIZER INC-2019303607

PATIENT
  Age: 51 Year

DRUGS (1)
  1. VIAGRA [Suspect]
     Active Substance: SILDENAFIL CITRATE
     Indication: SPINAL CORD INJURY
     Dosage: UNK

REACTIONS (3)
  - Paralysis [Unknown]
  - Product use in unapproved indication [Unknown]
  - Off label use [Unknown]
